FAERS Safety Report 14702310 (Version 1)
Quarter: 2018Q2

REPORT INFORMATION
  Report Type: Spontaneous
  Country: DE (occurrence: DE)
  Receive Date: 20180401
  Receipt Date: 20180401
  Transmission Date: 20180711
  Serious: Yes (Hospitalization, Other)
  Sender: FDA-Public Use
  Company Number: DE-ALLERGAN-1816719US

PATIENT
  Age: 36 Year
  Sex: Female

DRUGS (2)
  1. ARIPIPRAZOLE. [Suspect]
     Active Substance: ARIPIPRAZOLE
     Indication: PRODUCT USED FOR UNKNOWN INDICATION
     Dosage: 30 MG, QD
     Route: 048
  2. ASENAPINE MALEATE - BP [Suspect]
     Active Substance: ASENAPINE MALEATE
     Indication: PRODUCT USED FOR UNKNOWN INDICATION
     Dosage: 10 MG, QD
     Route: 048
     Dates: start: 20170310, end: 20170314

REACTIONS (5)
  - Ageusia [Recovered/Resolved]
  - Hypoaesthesia [Unknown]
  - Dysgeusia [Recovered/Resolved]
  - Inappropriate schedule of drug administration [Unknown]
  - Mania [Unknown]

NARRATIVE: CASE EVENT DATE: 20170310
